FAERS Safety Report 24105720 (Version 2)
Quarter: 2024Q3

REPORT INFORMATION
  Report Type: Spontaneous
  Country: ES (occurrence: ES)
  Receive Date: 20240717
  Receipt Date: 20240722
  Transmission Date: 20241017
  Serious: Yes (Other)
  Sender: PFIZER
  Company Number: ES-PFIZER INC-PV202400092790

PATIENT
  Age: 80 Year
  Sex: Female

DRUGS (7)
  1. METHOTREXATE SODIUM [Suspect]
     Active Substance: METHOTREXATE SODIUM
     Indication: Anaplastic large cell lymphoma T- and null-cell types
     Dosage: UNK, SYSTEMIC
     Dates: end: 201303
  2. DOXORUBICIN HYDROCHLORIDE [Suspect]
     Active Substance: DOXORUBICIN HYDROCHLORIDE
     Indication: Anaplastic large cell lymphoma T- and null-cell types
     Dosage: UNK, SYSTEMIC
     Dates: end: 201303
  3. VINCRISTINE SULFATE [Suspect]
     Active Substance: VINCRISTINE SULFATE
     Indication: Anaplastic large cell lymphoma T- and null-cell types
     Dosage: UNK, SYSTEMIC
     Dates: end: 201303
  4. RITUXIMAB [Suspect]
     Active Substance: RITUXIMAB
     Indication: Anaplastic large cell lymphoma T- and null-cell types
     Dosage: UNK, SYSTEMIC
     Dates: end: 201303
  5. BEXAROTENE [Suspect]
     Active Substance: BEXAROTENE
     Indication: Anaplastic large cell lymphoma T- and null-cell types
     Dosage: UNK, SYSTEMIC
     Dates: end: 201303
  6. CYCLOPHOSPHAMIDE [Suspect]
     Active Substance: CYCLOPHOSPHAMIDE
     Indication: Anaplastic large cell lymphoma T- and null-cell types
     Dosage: UNK, SYSTEMIC
     Dates: end: 201303
  7. PREDNISONE [Suspect]
     Active Substance: PREDNISONE
     Indication: Anaplastic large cell lymphoma T- and null-cell types
     Dosage: UNK, SYSTEMIC
     Dates: end: 201303

REACTIONS (1)
  - Toxicity to various agents [Unknown]

NARRATIVE: CASE EVENT DATE: 20130301
